FAERS Safety Report 5412083-0 (Version None)
Quarter: 2007Q3

REPORT INFORMATION
  Report Type: 
  Country: None (occurrence: None)
  Receive Date: 20070808
  Receipt Date: 20070727
  Transmission Date: 20080115
  Serious: Yes (Hospitalization)
  Sender: FDA-Public Use
  Company Number: 17154

PATIENT
  Age: 70 Year
  Sex: Female

DRUGS (6)
  1. VINCRISTINE. MFR: MAYNE [Suspect]
     Indication: EWING'S SARCOMA
     Dosage: 2 G DAILY IV
     Route: 042
     Dates: start: 20070524, end: 20070524
  2. HOLOXAN. MFR: NOT SPECIFIED [Suspect]
     Indication: EWING'S SARCOMA
     Dosage: 4532 MG DAILY IV
     Route: 042
     Dates: start: 20070524, end: 20070525
  3. ADRIAMYCIN PFS [Suspect]
     Indication: EWING'S SARCOMA
     Dosage: 90.6 MG DAILY IV
     Route: 042
     Dates: start: 20070525, end: 20070525
  4. CARDIOXANE [Suspect]
     Indication: PREMEDICATION
     Dosage: 1812 MG DAILY IV
     Route: 042
     Dates: start: 20070525, end: 20070525
  5. SOLU-MEDROL [Suspect]
  6. ZOFRAN [Concomitant]

REACTIONS (4)
  - ENCEPHALOPATHY [None]
  - HYPONATRAEMIA [None]
  - OLIGURIA [None]
  - SOMNOLENCE [None]
